FAERS Safety Report 9298361 (Version 1)
Quarter: 2013Q2

REPORT INFORMATION
  Report Type: Report from Study
  Country: US (occurrence: US)
  Receive Date: 20130520
  Receipt Date: 20130520
  Transmission Date: 20140414
  Serious: Yes (Other)
  Sender: FDA-Public Use
  Company Number: US-CELGENEUS-163-21880-13051730

PATIENT
  Age: 73 Year
  Sex: Female
  Weight: 58.8 kg

DRUGS (3)
  1. REVLIMID [Suspect]
     Indication: PLASMA CELL MYELOMA
     Route: 048
     Dates: start: 20100108
  2. REVLIMID [Suspect]
     Route: 048
     Dates: start: 20130311, end: 20130328
  3. LEVAQUIN [Concomitant]
     Indication: SKIN INFECTION
     Route: 065

REACTIONS (1)
  - Basal cell carcinoma [Not Recovered/Not Resolved]
